FAERS Safety Report 8300104-7 (Version None)
Quarter: 2012Q2

REPORT INFORMATION
  Report Type: 
  Country: None (occurrence: None)
  Receive Date: 20120420
  Receipt Date: 20120417
  Transmission Date: 20120825
  Serious: Yes (Other)
  Sender: FDA-Public Use
  Company Number: US-PFIZER INC-2012095298

PATIENT
  Sex: Female
  Weight: 68.027 kg

DRUGS (1)
  1. PREMARIN [Suspect]
     Indication: VULVOVAGINAL DRYNESS
     Dosage: UNK, 1X/DAY
     Route: 067
     Dates: start: 20110101

REACTIONS (3)
  - DISCOMFORT [None]
  - VAGINAL HAEMORRHAGE [None]
  - ABNORMAL BEHAVIOUR [None]
